FAERS Safety Report 7829773-2 (Version None)
Quarter: 2011Q4

REPORT INFORMATION
  Report Type: 
  Country: None (occurrence: None)
  Receive Date: 20111020
  Receipt Date: 20111020
  Transmission Date: 20120403
  Serious: No
  Sender: FDA-Public Use
  Company Number: None

PATIENT
  Age: 76 Year
  Sex: Female
  Weight: 72.5755 kg

DRUGS (3)
  1. AMLODIPINE BESYLATE [Suspect]
     Indication: HYPERTENSION
     Dates: start: 20081001
  2. AMLODIPINE BESYLATE [Suspect]
     Indication: CARDIAC DISORDER
     Dates: start: 20081001
  3. LISINOPRIL [Suspect]
     Indication: HYPERTENSION
     Dates: start: 20081001

REACTIONS (2)
  - WHITE BLOOD CELL COUNT DECREASED [None]
  - CONSTIPATION [None]
